FAERS Safety Report 6249573-7 (Version None)
Quarter: 2009Q2

REPORT INFORMATION
  Report Type: 
  Country: None (occurrence: None)
  Receive Date: 20090624
  Receipt Date: 20090612
  Transmission Date: 20091009
  Serious: Yes (Other)
  Sender: FDA-Public Use
  Company Number: 230317K09CAN

PATIENT
  Sex: Female

DRUGS (3)
  1. REBIF [Suspect]
     Indication: MULTIPLE SCLEROSIS
     Dosage: 44 MCG, 3 IN 1 WEEKS
     Dates: start: 20060620
  2. TYLENOL WITH CODEINE (PANADEINE CO) [Concomitant]
  3. ADVIL (IBUPROEN) [Concomitant]

REACTIONS (1)
  - CHOLELITHIASIS [None]
